FAERS Safety Report 14065240 (Version 2)
Quarter: 2017Q4

REPORT INFORMATION
  Report Type: Spontaneous
  Country: DE (occurrence: DE)
  Receive Date: 20171009
  Receipt Date: 20171101
  Transmission Date: 20180321
  Serious: Yes (Hospitalization, Other)
  Sender: FDA-Public Use
  Company Number: PHHY2017DE143619

PATIENT
  Sex: Male
  Weight: 20.1 kg

DRUGS (1)
  1. EXJADE [Suspect]
     Active Substance: DEFERASIROX
     Indication: THALASSAEMIA BETA
     Dosage: 750 MG, QD
     Route: 048
     Dates: start: 20151118, end: 20170918

REACTIONS (7)
  - Abdominal pain [Unknown]
  - Nausea [Unknown]
  - Gastrointestinal ulcer haemorrhage [Recovered/Resolved]
  - Haematochezia [Unknown]
  - General physical health deterioration [Recovered/Resolved]
  - Gastric ulcer [Recovered/Resolved]
  - Haemoglobin decreased [Recovered/Resolved]

NARRATIVE: CASE EVENT DATE: 20170917
